FAERS Safety Report 4568234-3 (Version None)
Quarter: 2005Q1

REPORT INFORMATION
  Report Type: 
  Country: None (occurrence: None)
  Receive Date: 20050202
  Receipt Date: 20041214
  Transmission Date: 20050727
  Serious: Yes (Death)
  Sender: FDA-Public Use
  Company Number: GB-SANOFI-SYNTHELABO-D01200405351

PATIENT
  Sex: Male

DRUGS (4)
  1. LEUCOVORIN CALCIUM [Suspect]
     Dosage: 200 MG/M2 AS 2 HOURS INFUSION ON D1-D2 Q2W
     Route: 042
     Dates: start: 20040615, end: 20040616
  2. FLUOROURACIL [Suspect]
     Dosage: 400 MG/M2 AS IV BOLUS THEN 600 MG/M2 AS 22 HOURS CONTINUOUS INFUSION D1-D2 Q2W
     Route: 042
     Dates: start: 20040615, end: 20040617
  3. OXALIPLATIN [Suspect]
     Route: 042
     Dates: start: 20040615, end: 20040615
  4. SR57746 OR PLACEBO [Suspect]
     Route: 048
     Dates: start: 20031125, end: 20040629

REACTIONS (14)
  - BRONCHOPNEUMONIA [None]
  - CHILLS [None]
  - COLON CANCER [None]
  - COUGH [None]
  - DYSPNOEA [None]
  - INFECTION IN AN IMMUNOCOMPROMISED HOST [None]
  - METASTASES TO LIVER [None]
  - METASTASES TO LUNG [None]
  - OXYGEN SATURATION DECREASED [None]
  - PERITONEAL ADHESIONS [None]
  - PLEURAL ADHESION [None]
  - PLEURAL FIBROSIS [None]
  - PULMONARY FIBROSIS [None]
  - PYREXIA [None]
